FAERS Safety Report 11721049 (Version 2)
Quarter: 2016Q1

REPORT INFORMATION
  Report Type: Spontaneous
  Country: US (occurrence: US)
  Receive Date: 20151110
  Receipt Date: 20160209
  Transmission Date: 20160525
  Serious: No
  Sender: FDA-Public Use
  Company Number: US-SA-2015SA167589

PATIENT
  Sex: Female

DRUGS (2)
  1. ALIROCUMAB PREFILLED PEN [Concomitant]
     Active Substance: ALIROCUMAB
     Dates: end: 20151016
  2. PRALUENT [Suspect]
     Active Substance: ALIROCUMAB
     Route: 065
     Dates: end: 20151016

REACTIONS (3)
  - Erythema [Unknown]
  - Injection site erythema [Unknown]
  - Petechiae [Unknown]
